FAERS Safety Report 5235701-9 (Version None)
Quarter: 2007Q1

REPORT INFORMATION
  Report Type: 
  Country: None (occurrence: None)
  Receive Date: 20061208
  Receipt Date: 20051121
  Transmission Date: 20070707
  Serious: Yes (Other)
  Sender: FDA-Public Use
  Company Number: 2005UW17634

PATIENT
  Age: 73 Year
  Sex: Female
  Weight: 45.359 kg

DRUGS (3)
  1. CRESTOR [Suspect]
     Indication: BLOOD CHOLESTEROL INCREASED
     Dosage: 5 MG DAILY PO
     Route: 048
     Dates: start: 20051117, end: 20051120
  2. AGGRENOX [Concomitant]
  3. FOSAMAX [Concomitant]

REACTIONS (3)
  - FLATULENCE [None]
  - NASAL DISCOMFORT [None]
  - THROAT IRRITATION [None]
